FAERS Safety Report 21440626 (Version 2)
Quarter: 2022Q4

REPORT INFORMATION
  Report Type: Spontaneous
  Country: DE (occurrence: DE)
  Receive Date: 20221011
  Receipt Date: 20221017
  Transmission Date: 20230112
  Serious: Yes (Other)
  Sender: FDA-Public Use
  Company Number: DE-NOVARTISPH-NVSC2022DE223916

PATIENT
  Age: 51 Year
  Sex: Female

DRUGS (3)
  1. CARBOPLATIN [Suspect]
     Active Substance: CARBOPLATIN
     Indication: Neuroendocrine breast tumour
     Dosage: UNK, 6 CYCLES, MONTH 2
     Route: 065
  2. ETOPOSIDE [Suspect]
     Active Substance: ETOPOSIDE
     Indication: Neuroendocrine breast tumour
     Dosage: UNK, 6 CYCLES, MONTH 2
     Route: 065
  3. RITUXIMAB [Concomitant]
     Active Substance: RITUXIMAB
     Indication: Neuroendocrine breast tumour
     Dosage: UNK, MONTH 9
     Route: 065

REACTIONS (6)
  - Neuroendocrine breast tumour [Unknown]
  - Malignant neoplasm progression [Unknown]
  - Metastases to liver [Unknown]
  - Metastases to bone [Unknown]
  - Drug intolerance [Unknown]
  - Product use in unapproved indication [Unknown]
